FAERS Safety Report 23041413 (Version 5)
Quarter: 2024Q1

REPORT INFORMATION
  Report Type: Report from Study
  Country: US (occurrence: US)
  Receive Date: 20231007
  Receipt Date: 20240111
  Transmission Date: 20240409
  Serious: No
  Sender: FDA-Public Use
  Company Number: US-002147023-NVSC2023US216183

PATIENT
  Sex: Female

DRUGS (3)
  1. ENTRESTO [Suspect]
     Active Substance: SACUBITRIL\VALSARTAN
     Indication: Acute pulmonary oedema
     Dosage: 1 DOSAGE FORM, BID (50MG), OTHER DOSAGE 24/26MG
     Route: 065
     Dates: start: 20231002
  2. FUROSEMIDE [Suspect]
     Active Substance: FUROSEMIDE
     Indication: Product used for unknown indication
     Dosage: UNK
     Route: 065
  3. METOPROLOL [Concomitant]
     Active Substance: METOPROLOL
     Indication: Product used for unknown indication
     Dosage: UNK
     Route: 065

REACTIONS (5)
  - Swelling face [Unknown]
  - Hypotension [Unknown]
  - Diarrhoea [Unknown]
  - Product prescribing issue [Unknown]
  - Arthralgia [Not Recovered/Not Resolved]
